FAERS Safety Report 6954340-2 (Version None)
Quarter: 2010Q3

REPORT INFORMATION
  Report Type: 
  Country: None (occurrence: None)
  Receive Date: 20100829
  Receipt Date: 20100706
  Transmission Date: 20110219
  Serious: No
  Sender: FDA-Public Use
  Company Number: US-ABBOTT-10P-163-0656892-00

PATIENT
  Sex: Male
  Weight: 87.622 kg

DRUGS (11)
  1. NIASPAN [Suspect]
     Indication: BLOOD CHOLESTEROL INCREASED
     Dates: start: 20090101
  2. NIASPAN [Suspect]
     Indication: HIGH DENSITY LIPOPROTEIN DECREASED
  3. LIPITOR [Concomitant]
     Indication: HIGH DENSITY LIPOPROTEIN DECREASED
  4. LIPITOR [Concomitant]
     Indication: BLOOD CHOLESTEROL INCREASED
  5. ZETIA [Concomitant]
     Indication: HIGH DENSITY LIPOPROTEIN DECREASED
  6. ZETIA [Concomitant]
     Indication: BLOOD CHOLESTEROL INCREASED
     Dates: start: 20090101
  7. ASPIRIN [Concomitant]
     Indication: PRODUCT USED FOR UNKNOWN INDICATION
  8. VITAMIN B COMPLEX CAP [Concomitant]
     Indication: PRODUCT USED FOR UNKNOWN INDICATION
  9. CENTRUM SILVER [Concomitant]
     Indication: PRODUCT USED FOR UNKNOWN INDICATION
  10. VITE EYES [Concomitant]
     Indication: PRODUCT USED FOR UNKNOWN INDICATION
  11. OMEGA 3 6 9 [Concomitant]
     Indication: PRODUCT USED FOR UNKNOWN INDICATION

REACTIONS (1)
  - ERECTILE DYSFUNCTION [None]
